FAERS Safety Report 5691573-X (Version None)
Quarter: 2008Q2

REPORT INFORMATION
  Report Type: 
  Country: None (occurrence: None)
  Receive Date: 20080402
  Receipt Date: 20050210
  Transmission Date: 20081010
  Serious: Yes (Death, Hospitalization, Other)
  Sender: FDA-Public Use
  Company Number: US-ROCHE-395139

PATIENT
  Age: 47 Year
  Sex: Male
  Weight: 102.5 kg

DRUGS (10)
  1. PEG-INTERFERON A-2A (RO 25-8310) [Suspect]
     Indication: HEPATITIS C
     Route: 058
     Dates: start: 20041001
  2. REBETOL [Suspect]
     Indication: HEPATITIS C
     Route: 048
  3. PREVACID [Concomitant]
     Route: 048
  4. DAYPRO [Concomitant]
     Route: 048
  5. HYDROCODONE BITARTRATE [Concomitant]
     Route: 048
  6. FLEXERIL [Concomitant]
     Indication: BACK PAIN
     Route: 048
     Dates: start: 20041202
  7. PERCOCET [Concomitant]
     Indication: BACK PAIN
     Route: 048
     Dates: start: 20041202
  8. HYZAAR [Concomitant]
     Dosage: DAILY.
     Route: 048
  9. CHLORPROMAZINE [Concomitant]
     Dosage: AT BEDTIME.
     Route: 048
     Dates: end: 20041216
  10. FLAGYL [Concomitant]
     Indication: INFECTION
     Dates: start: 20041101, end: 20041201

REACTIONS (10)
  - CARDIOMEGALY [None]
  - COUGH [None]
  - DIABETES MELLITUS [None]
  - HEPATIC STEATOSIS [None]
  - HYPOTENSION [None]
  - INFECTION [None]
  - PANCREATITIS ACUTE [None]
  - PLEURAL EFFUSION [None]
  - SEPTIC SHOCK [None]
  - TACHYCARDIA [None]
